FAERS Safety Report 4414375-0 (Version None)
Quarter: 2004Q3

REPORT INFORMATION
  Report Type: 
  Country: None (occurrence: None)
  Receive Date: 20040729
  Receipt Date: 20040716
  Transmission Date: 20050211
  Serious: Yes (Other)
  Sender: FDA-Public Use
  Company Number: DE-2004-028880

PATIENT
  Sex: Female

DRUGS (1)
  1. BETAFERON (INTERFERON BETA-1B) INJECTION, 250UG [Suspect]
     Indication: MULTIPLE SCLEROSIS
     Dates: start: 20040401

REACTIONS (5)
  - ANXIETY [None]
  - DEPRESSION [None]
  - DIPLOPIA [None]
  - NAUSEA [None]
  - SYNCOPE [None]
